FAERS Safety Report 4873311-3 (Version None)
Quarter: 2005Q4

REPORT INFORMATION
  Report Type: 
  Country: None (occurrence: None)
  Receive Date: 20051201
  Receipt Date: 20050801
  Transmission Date: 20060501
  Serious: No
  Sender: FDA-Public Use
  Company Number: 2005PV000896

PATIENT
  Age: 38 Year
  Sex: Female
  Weight: 318 kg

DRUGS (6)
  1. BYETTA [Suspect]
     Indication: DIABETES MELLITUS NON-INSULIN-DEPENDENT
     Dosage: SEE IMAGE
     Route: 058
     Dates: start: 20050721, end: 20050727
  2. HUMULIN R [Concomitant]
  3. ADVANDAMET [Concomitant]
  4. HYDROCHLOROTHIAZID [Concomitant]
  5. AVAPRO [Concomitant]
  6. MULTIVITAMIN [Concomitant]

REACTIONS (8)
  - ASTHENIA [None]
  - DECREASED APPETITE [None]
  - DEHYDRATION [None]
  - GASTROOESOPHAGEAL REFLUX DISEASE [None]
  - INFLUENZA LIKE ILLNESS [None]
  - MALAISE [None]
  - NAUSEA [None]
  - VOMITING [None]
